FAERS Safety Report 10211114 (Version 2)
Quarter: 2014Q2

REPORT INFORMATION
  Report Type: Spontaneous
  Country: US (occurrence: US)
  Receive Date: 20140602
  Receipt Date: 20140610
  Transmission Date: 20141212
  Serious: Yes (Other)
  Sender: FDA-Public Use
  Company Number: CHPA2014US007222

PATIENT
  Age: 87 Year
  Sex: Female

DRUGS (4)
  1. VOLTAREN GEL [Suspect]
     Indication: RHEUMATOID ARTHRITIS
     Dosage: MORE THAN THE DOSING CARD SAYS, UNK
     Route: 061
  2. VOLTAREN GEL [Suspect]
     Indication: OFF LABEL USE
  3. VICODIN [Suspect]
     Dosage: UNK
  4. WARFARIN [Suspect]
     Indication: ATRIAL FIBRILLATION

REACTIONS (7)
  - Myocardial infarction [Recovered/Resolved]
  - Cataract [Not Recovered/Not Resolved]
  - Blood viscosity decreased [Not Recovered/Not Resolved]
  - Pain [Not Recovered/Not Resolved]
  - Drug dispensed to wrong patient [Unknown]
  - Wrong technique in drug usage process [Unknown]
  - Therapeutic response changed [Unknown]
